FAERS Safety Report 12786689 (Version 3)
Quarter: 2017Q1

REPORT INFORMATION
  Report Type: Report from Study
  Country: MW (occurrence: MW)
  Receive Date: 20160927
  Receipt Date: 20170210
  Transmission Date: 20170428
  Serious: Yes (Hospitalization, Other)
  Sender: FDA-Public Use
  Company Number: MW-GILEAD-2016-0233550

PATIENT
  Age: 50 Year
  Sex: Male
  Weight: 41.7 kg

DRUGS (3)
  1. TENOFOVIR + LAMIVUDINE + EFAVIRENZ [Concomitant]
     Dosage: UNK
     Dates: end: 20160816
  2. PACLITAXEL. [Suspect]
     Active Substance: PACLITAXEL
     Indication: KAPOSI^S SARCOMA AIDS RELATED
     Dosage: 147 MG, CYCLICAL
     Route: 042
     Dates: start: 20160817
  3. EFAVIRENZ/EMTRICITABINE/TENOFOVIR DISOPROXIL FUMARATE [Suspect]
     Active Substance: EFAVIRENZ\EMTRICITABINE\TENOFOVIR DISOPROXIL FUMARATE
     Indication: KAPOSI^S SARCOMA AIDS RELATED
     Dosage: 600/200/300 MG QD
     Route: 048
     Dates: start: 20160816

REACTIONS (1)
  - Pulmonary tuberculosis [Recovering/Resolving]

NARRATIVE: CASE EVENT DATE: 20160828
